FAERS Safety Report 24764055 (Version 1)
Quarter: 2024Q4

REPORT INFORMATION
  Report Type: Spontaneous
  Country: CN (occurrence: CN)
  Receive Date: 20241223
  Receipt Date: 20241223
  Transmission Date: 20250114
  Serious: Yes (Other)
  Sender: ROCHE
  Company Number: CN-ROCHE-10000157308

PATIENT
  Age: 73 Year
  Sex: Male
  Weight: 46 kg

DRUGS (3)
  1. BEVACIZUMAB [Suspect]
     Active Substance: BEVACIZUMAB
     Indication: Colon cancer
     Route: 042
     Dates: start: 20241018, end: 20241018
  2. LOPERAMIDE HYDROCHLORIDE [Concomitant]
     Active Substance: LOPERAMIDE HYDROCHLORIDE
  3. DOLASETRON MESYLATE [Concomitant]
     Active Substance: DOLASETRON MESYLATE

REACTIONS (10)
  - Diarrhoea [Not Recovered/Not Resolved]
  - Myelosuppression [Not Recovered/Not Resolved]
  - Asthenia [Unknown]
  - Pyrexia [Unknown]
  - Nausea [Unknown]
  - Vomiting [Unknown]
  - Neurosis [Unknown]
  - Decreased appetite [Unknown]
  - Poor quality sleep [Unknown]
  - Weight decreased [Unknown]

NARRATIVE: CASE EVENT DATE: 20241020
